FAERS Safety Report 10960012 (Version 2)
Quarter: 2015Q2

REPORT INFORMATION
  Report Type: Spontaneous
  Country: GB (occurrence: GB)
  Receive Date: 20150327
  Receipt Date: 20150610
  Transmission Date: 20150821
  Serious: Yes (Life-Threatening, Hospitalization, Other)
  Sender: FDA-Public Use
  Company Number: GB-TEVA-548231ACC

PATIENT
  Age: 65 Year
  Sex: Male
  Weight: 92 kg

DRUGS (17)
  1. MEBEVERINE [Concomitant]
     Active Substance: MEBEVERINE
  2. OMEPRAZOLE. [Concomitant]
     Active Substance: OMEPRAZOLE
  3. SERETIDE [Concomitant]
     Active Substance: FLUTICASONE FUROATE\SALMETEROL XINAFOATE
  4. SPIRONOLACTONE. [Concomitant]
     Active Substance: SPIRONOLACTONE
  5. CLOPIDOGREL [Concomitant]
     Active Substance: CLOPIDOGREL BISULFATE
  6. PARACETAMOL [Concomitant]
     Active Substance: ACETAMINOPHEN
  7. TIOTROPIUM BROMIDE [Concomitant]
     Active Substance: TIOTROPIUM BROMIDE
  8. BISACODYL. [Concomitant]
     Active Substance: BISACODYL
  9. COLECALCIFEROL [Concomitant]
     Active Substance: CHOLECALCIFEROL
  10. MULTIVITAMIN [Concomitant]
     Active Substance: VITAMINS
  11. THIAMINE [Concomitant]
     Active Substance: THIAMINE
  12. SALBUTAMOL [Concomitant]
     Active Substance: ALBUTEROL
  13. SOLIFENACIN [Concomitant]
     Active Substance: SOLIFENACIN
  14. VERAPAMIL [Suspect]
     Active Substance: VERAPAMIL HYDROCHLORIDE
     Indication: HYPERTENSION
     Dosage: 480 MILLIGRAM DAILY;
     Route: 048
     Dates: start: 20000306, end: 20150304
  15. HYOSCINE BUTYLBROMIDE [Concomitant]
     Active Substance: BUTYLSCOPOLAMINE
  16. MACROGOL [Concomitant]
     Active Substance: POLYETHYLENE GLYCOLS
  17. CARVEDILOL. [Suspect]
     Active Substance: CARVEDILOL
     Indication: VARICES OESOPHAGEAL
     Dosage: 6.25 MILLIGRAM DAILY;
     Route: 048
     Dates: start: 20150210, end: 20150304

REACTIONS (6)
  - Atrioventricular block complete [Recovered/Resolved with Sequelae]
  - Bradycardia [Unknown]
  - Medication error [Unknown]
  - Dizziness [Unknown]
  - Contraindicated drug administered [Unknown]
  - Fall [Unknown]

NARRATIVE: CASE EVENT DATE: 20150210
